FAERS Safety Report 14766484 (Version 2)
Quarter: 2018Q2

REPORT INFORMATION
  Report Type: Spontaneous
  Country: GB (occurrence: GB)
  Receive Date: 20180416
  Receipt Date: 20180606
  Transmission Date: 20180711
  Serious: Yes (Hospitalization)
  Sender: FDA-Public Use
  Company Number: GB-TEVA-2018-GB-881375

PATIENT
  Age: 74 Year
  Sex: Male

DRUGS (10)
  1. METFORMIN [Concomitant]
     Active Substance: METFORMIN HYDROCHLORIDE
     Route: 065
  2. NOVORAPID [Concomitant]
     Active Substance: INSULIN ASPART
     Route: 065
  3. ACETYLSALICYLIC ACID [Concomitant]
     Active Substance: ASPIRIN
     Route: 065
  4. FENOFIBRATE MICRONISED [Suspect]
     Active Substance: FENOFIBRATE
     Dosage: 267 MILLIGRAM DAILY;
     Route: 048
     Dates: end: 20171115
  5. LANTUS [Concomitant]
     Active Substance: INSULIN GLARGINE
     Route: 065
  6. HYDROXOCOBALAMIN [Concomitant]
     Active Substance: HYDROXOCOBALAMIN
     Route: 065
  7. LANSOPRAZOLE. [Concomitant]
     Active Substance: LANSOPRAZOLE
     Route: 065
  8. ATORVASTATIN [Suspect]
     Active Substance: ATORVASTATIN
     Indication: MUSCLE SPASMS
     Route: 048
     Dates: end: 20171115
  9. NAFTIDROFURYL [Suspect]
     Active Substance: NAFRONYL
     Indication: PERIPHERAL VASCULAR DISORDER
     Dosage: 300 MILLIGRAM DAILY;
     Route: 048
     Dates: start: 20171031, end: 20171110
  10. CANDESARTAN. [Concomitant]
     Active Substance: CANDESARTAN
     Route: 065

REACTIONS (4)
  - Dyspnoea [Unknown]
  - Coagulopathy [Unknown]
  - Liver function test abnormal [Unknown]
  - Atrial flutter [Unknown]

NARRATIVE: CASE EVENT DATE: 20171115
